FAERS Safety Report 12889215 (Version 2)
Quarter: 2016Q4

REPORT INFORMATION
  Report Type: Report from Study
  Country: BR (occurrence: BR)
  Receive Date: 20161027
  Receipt Date: 20161102
  Transmission Date: 20170207
  Serious: Yes (Other)
  Sender: FDA-Public Use
  Company Number: PHHY2016BR147549

PATIENT
  Sex: Female

DRUGS (1)
  1. DIOVAN HCT [Suspect]
     Active Substance: HYDROCHLOROTHIAZIDE\VALSARTAN
     Indication: HYPERTENSION
     Dosage: (VALSARTAN 320 MG, HYDROCHLOROTHIAZIDE 12.5 MG)
     Route: 065

REACTIONS (3)
  - Malaise [Recovering/Resolving]
  - Blood pressure inadequately controlled [Recovering/Resolving]
  - Blood pressure increased [Recovering/Resolving]
